FAERS Safety Report 5933453-8 (Version None)
Quarter: 2008Q4

REPORT INFORMATION
  Report Type: 
  Country: None (occurrence: None)
  Receive Date: 20081022
  Receipt Date: 20061212
  Transmission Date: 20090506
  Serious: Yes (Other)
  Sender: FDA-Public Use
  Company Number: US-WYE-H06419408

PATIENT

DRUGS (1)
  1. ROBITUSSIN COUGH LONG ACTING (DEXTROMETHORPHAN HYDROBROMIDE, SYRUP) [Suspect]
     Indication: DRUG ABUSE

REACTIONS (5)
  - CONFUSIONAL STATE [None]
  - DRUG ABUSE [None]
  - HYPERTENSION [None]
  - LETHARGY [None]
  - TACHYCARDIA [None]
